FAERS Safety Report 12860945 (Version 2)
Quarter: 2016Q4

REPORT INFORMATION
  Report Type: Spontaneous
  Country: CH (occurrence: CH)
  Receive Date: 20161019
  Receipt Date: 20161025
  Transmission Date: 20170207
  Serious: Yes (Death, Life-Threatening, Hospitalization)
  Sender: FDA-Public Use
  Company Number: CH-ORION CORPORATION ORION PHARMA-16_00001957

PATIENT
  Age: 78 Year
  Sex: Female

DRUGS (18)
  1. MOVICOL [Concomitant]
     Active Substance: POLYETHYLENE GLYCOL 3350\POTASSIUM CHLORIDE\SODIUM BICARBONATE\SODIUM CHLORIDE
     Route: 048
  2. NOVALGIN [Interacting]
     Active Substance: METAMIZOLE SODIUM
     Indication: PAIN
     Route: 048
     Dates: end: 20160924
  3. CLEXANE [Interacting]
     Active Substance: ENOXAPARIN SODIUM
     Indication: THROMBOSIS PROPHYLAXIS
     Dosage: STRENGTH: 20 MG/0.2 ML
     Route: 058
  4. NEXIUM [Interacting]
     Active Substance: ESOMEPRAZOLE MAGNESIUM
     Indication: GASTROOESOPHAGEAL REFLUX PROPHYLAXIS
     Route: 048
  5. AMLODIPIN [Concomitant]
     Active Substance: AMLODIPINE BESYLATE
     Indication: HYPERTENSION
     Route: 048
  6. COAPROVEL FORTE [Interacting]
     Active Substance: HYDROCHLOROTHIAZIDE\IRBESARTAN
     Indication: HYPERTENSION
     Dosage: STRENGTH: 300/12.5 MG
     Route: 048
     Dates: end: 201609
  7. ANAFRANIL [Concomitant]
     Active Substance: CLOMIPRAMINE HYDROCHLORIDE
     Route: 048
  8. METHOTREXATE. [Suspect]
     Active Substance: METHOTREXATE
     Indication: RHEUMATOID ARTHRITIS
     Dosage: STRENGTH: 2.5 MG
     Route: 048
     Dates: start: 20160921, end: 20160923
  9. BELOC ZOK [Concomitant]
     Active Substance: METOPROLOL SUCCINATE
     Dosage: STRENGTH: 50 MG
     Route: 048
  10. DUPHALAC [Concomitant]
     Active Substance: LACTULOSE
     Route: 048
  11. DUROGESIC [Concomitant]
     Active Substance: FENTANYL
     Indication: PAIN
     Dosage: STRENGTH: 50 UG/H
     Route: 062
  12. SERESTA [Concomitant]
     Active Substance: OXAZEPAM
     Route: 048
  13. KCL HAUSMANN [Concomitant]
     Route: 048
  14. TRAMAL [Concomitant]
     Active Substance: TRAMADOL
     Indication: PAIN
     Route: 048
  15. DAFALGAN [Interacting]
     Active Substance: ACETAMINOPHEN
     Indication: PAIN
     Dosage: STRENGTH: 1 GRAM
     Route: 048
  16. SPIRICORT [Concomitant]
     Active Substance: PREDNISOLONE
     Indication: RHEUMATOID ARTHRITIS
     Dosage: STRENGTH: 5 MG
     Route: 048
  17. DUROGESIC [Concomitant]
     Active Substance: FENTANYL
     Dosage: STRENGTH: 25 UG/H
     Route: 062
  18. SYMBICORT [Concomitant]
     Active Substance: BUDESONIDE\FORMOTEROL FUMARATE DIHYDRATE
     Indication: CHRONIC OBSTRUCTIVE PULMONARY DISEASE
     Dosage: 200/6
     Route: 055

REACTIONS (12)
  - Nausea [Unknown]
  - Pneumonia [Unknown]
  - Drug interaction [Recovered/Resolved]
  - Accidental overdose [Fatal]
  - Hepatitis [Unknown]
  - Vomiting [Unknown]
  - Toxicity to various agents [Unknown]
  - Disturbance in attention [Fatal]
  - Septic shock [Fatal]
  - Acute kidney injury [Fatal]
  - Mouth ulceration [Fatal]
  - Pancytopenia [Fatal]

NARRATIVE: CASE EVENT DATE: 201609
